FAERS Safety Report 18220029 (Version 1)
Quarter: 2020Q3

REPORT INFORMATION
  Report Type: Other
  Country: US (occurrence: US)
  Receive Date: 20200901
  Receipt Date: 20200901
  Transmission Date: 20201103
  Serious: Yes (Other)
  Sender: FDA-Public Use
  Company Number: US-ROCHE-2666121

PATIENT
  Age: 54 Year
  Sex: Female

DRUGS (1)
  1. OCREVUS [Suspect]
     Active Substance: OCRELIZUMAB
     Indication: RELAPSING-REMITTING MULTIPLE SCLEROSIS
     Dosage: NEXT DOSE: 30/NOV/2017 (300 MG), 29/MAY/2018 (600 MG)
     Route: 065
     Dates: start: 20171117, end: 2018

REACTIONS (1)
  - Urinary tract infection [Unknown]
